FAERS Safety Report 8481073-6 (Version None)
Quarter: 2012Q3

REPORT INFORMATION
  Report Type: 
  Country: None (occurrence: None)
  Receive Date: 20120702
  Receipt Date: 20120627
  Transmission Date: 20120928
  Serious: Yes (Other)
  Sender: FDA-Public Use
  Company Number: CHPA2012DE010068

PATIENT
  Age: 65 Year
  Sex: Male

DRUGS (1)
  1. VOLTAREN [Suspect]
     Dosage: UNK, UNK
     Route: 061

REACTIONS (6)
  - SKIN REACTION [None]
  - URTICARIA [None]
  - ERYTHEMA [None]
  - RASH [None]
  - PRURITUS [None]
  - HYPERSENSITIVITY [None]
